FAERS Safety Report 4304955-5 (Version None)
Quarter: 2004Q1

REPORT INFORMATION
  Report Type: 
  Country: None (occurrence: None)
  Receive Date: 20040224
  Receipt Date: 20040211
  Transmission Date: 20041129
  Serious: Yes (Death)
  Sender: FDA-Public Use
  Company Number: US-JNJFOC-20040203016

PATIENT
  Age: 42 Year
  Sex: Female

DRUGS (2)
  1. REMICADE [Suspect]
     Indication: PSORIASIS
     Dosage: 2 YEARS MAINTENENCE
     Dates: start: 20031201, end: 20031201
  2. ARAVA [Concomitant]

REACTIONS (2)
  - OEDEMA [None]
  - PULMONARY HYPERTENSION [None]
